FAERS Safety Report 23258412 (Version 1)
Quarter: 2023Q4

REPORT INFORMATION
  Report Type: Spontaneous
  Country: US (occurrence: US)
  Receive Date: 20231204
  Receipt Date: 20231204
  Transmission Date: 20240110
  Serious: Yes (Other)
  Sender: FDA-Public Use
  Company Number: US-BEH-2023165885

PATIENT
  Sex: Female

DRUGS (3)
  1. HIZENTRA [Suspect]
     Active Substance: HUMAN IMMUNOGLOBULIN G
     Indication: Humoral immune defect
     Dosage: 7 GRAM, QW
     Route: 058
     Dates: start: 202308
  2. HIZENTRA [Suspect]
     Active Substance: HUMAN IMMUNOGLOBULIN G
     Dosage: 8 GRAM, QW
     Route: 065
     Dates: start: 2023
  3. PROGESTERONE [Concomitant]
     Active Substance: PROGESTERONE

REACTIONS (4)
  - Infection [Unknown]
  - Weight fluctuation [Unknown]
  - No adverse event [Unknown]
  - Therapy change [Unknown]

NARRATIVE: CASE EVENT DATE: 20230101
